FAERS Safety Report 15165265 (Version 1)
Quarter: 2018Q3

REPORT INFORMATION
  Report Type: Spontaneous
  Country: CA (occurrence: CA)
  Receive Date: 20180719
  Receipt Date: 20180719
  Transmission Date: 20181010
  Serious: Yes (Other)
  Sender: FDA-Public Use
  Company Number: CA-ASTRAZENECA-2018SE89398

PATIENT
  Age: 60 Year
  Sex: Female

DRUGS (1)
  1. FORXIGA [Suspect]
     Active Substance: DAPAGLIFLOZIN
     Indication: TYPE 2 DIABETES MELLITUS
     Route: 048

REACTIONS (5)
  - Oropharyngeal pain [Unknown]
  - Abdominal tenderness [Unknown]
  - Pancreatitis [Unknown]
  - Abdominal pain upper [Unknown]
  - Lipase abnormal [Unknown]
